FAERS Safety Report 6680098-0 (Version None)
Quarter: 2010Q2

REPORT INFORMATION
  Report Type: 
  Country: None (occurrence: None)
  Receive Date: 20100413
  Receipt Date: 20100401
  Transmission Date: 20101027
  Serious: Yes (Hospitalization, Other)
  Sender: FDA-Public Use
  Company Number: PHHY2010CN18569

PATIENT
  Age: 66 Year
  Sex: Female

DRUGS (5)
  1. VOLTAREN [Suspect]
     Indication: MYALGIA
     Dosage: 10 DF, QD
     Route: 048
     Dates: start: 20100324, end: 20100324
  2. VOLTAREN [Suspect]
     Dosage: 1 DF, BID
     Route: 048
     Dates: start: 20100325
  3. MORPHINE [Concomitant]
     Indication: PAIN
     Dosage: UNK
     Dates: start: 20100325
  4. CALCIUM GLUCONATE [Concomitant]
     Indication: MYALGIA
     Dosage: 20 MG, UNK
  5. LELI [Concomitant]

REACTIONS (7)
  - GAIT DISTURBANCE [None]
  - GASTROINTESTINAL HAEMORRHAGE [None]
  - HAEMATOCHEZIA [None]
  - HYPERTENSION [None]
  - OVERDOSE [None]
  - PYREXIA [None]
  - VAGINAL HAEMORRHAGE [None]
